FAERS Safety Report 9051448 (Version 1)
Quarter: 2013Q1

REPORT INFORMATION
  Report Type: Spontaneous
  Country: US (occurrence: US)
  Receive Date: 20130206
  Receipt Date: 20130206
  Transmission Date: 20140127
  Serious: No
  Sender: FDA-Public Use
  Company Number: US-ALLERGAN-1211583US

PATIENT
  Sex: Female

DRUGS (4)
  1. RESTASIS [Suspect]
     Indication: DRY EYE
  2. RESTASIS [Suspect]
     Indication: DRY MOUTH
  3. RIVAROXABAN [Concomitant]
     Indication: ATRIAL FIBRILLATION
     Dosage: 15 MG, QD
     Dates: start: 20120701, end: 201207
  4. RIVAROXABAN [Concomitant]
     Dosage: 20 MG, UNK
     Dates: start: 20120701

REACTIONS (1)
  - Drug ineffective [Unknown]
